FAERS Safety Report 4845987-8 (Version None)
Quarter: 2005Q4

REPORT INFORMATION
  Report Type: 
  Country: None (occurrence: None)
  Receive Date: 20051206
  Receipt Date: 20051122
  Transmission Date: 20060501
  Serious: Yes (Hospitalization)
  Sender: FDA-Public Use
  Company Number: US-JNJFOC-20051005597

PATIENT
  Sex: Male
  Weight: 65.77 kg

DRUGS (1)
  1. REMICADE [Suspect]
     Dosage: ONE DOSE
     Route: 042

REACTIONS (2)
  - COLECTOMY [None]
  - DRUG INEFFECTIVE [None]
